FAERS Safety Report 25368541 (Version 1)
Quarter: 2025Q2

REPORT INFORMATION
  Report Type: Spontaneous
  Country: US (occurrence: US)
  Receive Date: 20250528
  Receipt Date: 20250528
  Transmission Date: 20250717
  Serious: Yes (Other)
  Sender: APOTEX
  Company Number: US-APOTEX-2025AP007721

PATIENT
  Age: 42 Year
  Sex: Female

DRUGS (3)
  1. MODAFINIL [Suspect]
     Active Substance: MODAFINIL
     Indication: Product used for unknown indication
     Route: 065
  2. LUMRYZ [Suspect]
     Active Substance: SODIUM OXYBATE
     Indication: Narcolepsy
     Dosage: 6 GRAM, Q.H.S.
     Route: 048
     Dates: start: 20250304, end: 2025
  3. LUMRYZ [Suspect]
     Active Substance: SODIUM OXYBATE
     Indication: Narcolepsy
     Dosage: 7.5 GRAM, Q.H.S.
     Route: 048
     Dates: start: 2025, end: 2025

REACTIONS (7)
  - Sudden onset of sleep [Unknown]
  - Brain fog [Unknown]
  - Amnesia [Unknown]
  - Fatigue [Unknown]
  - Fall [Unknown]
  - Nocturia [Unknown]
  - Somnolence [Unknown]

NARRATIVE: CASE EVENT DATE: 20250101
